FAERS Safety Report 20138310 (Version 2)
Quarter: 2022Q1

REPORT INFORMATION
  Report Type: Spontaneous
  Country: IT (occurrence: IT)
  Receive Date: 20211202
  Receipt Date: 20220302
  Transmission Date: 20220423
  Serious: Yes (Hospitalization)
  Sender: FDA-Public Use
  Company Number: None

PATIENT
  Age: 62 Year
  Sex: Female

DRUGS (5)
  1. MIRTAZAPINE [Suspect]
     Active Substance: MIRTAZAPINE
     Indication: Intentional self-injury
     Dosage: 3600 MG, ABUSE / MISUSE
     Route: 048
     Dates: start: 20210924, end: 20210924
  2. RIVOTRIL [Concomitant]
     Active Substance: CLONAZEPAM
     Dosage: 20 MG
     Route: 048
     Dates: start: 20210924, end: 20210924
  3. GABAPENTIN [Concomitant]
     Active Substance: GABAPENTIN
     Dosage: 400 MG
  4. LEVOTHYROXINE SODIUM [Concomitant]
     Active Substance: LEVOTHYROXINE SODIUM
     Dosage: 75 MCG
  5. PAROXETINE [Concomitant]
     Active Substance: PAROXETINE
     Dosage: 30 MG

REACTIONS (2)
  - Hypertensive crisis [Recovering/Resolving]
  - Drug abuse [Recovering/Resolving]

NARRATIVE: CASE EVENT DATE: 20210924
